FAERS Safety Report 16653280 (Version 1)
Quarter: 2019Q3

REPORT INFORMATION
  Report Type: Report from Study
  Country: GB (occurrence: GB)
  Receive Date: 20190731
  Receipt Date: 20190731
  Transmission Date: 20191004
  Serious: Yes (Hospitalization)
  Sender: FDA-Public Use
  Company Number: GB-JNJFOC-20190742157

PATIENT
  Sex: Male
  Weight: 73.7 kg

DRUGS (1)
  1. STELARA [Suspect]
     Active Substance: USTEKINUMAB
     Indication: PSORIASIS
     Route: 058
     Dates: start: 20151030, end: 20190501

REACTIONS (1)
  - Laryngeal squamous cell carcinoma [Unknown]

NARRATIVE: CASE EVENT DATE: 20190501
